FAERS Safety Report 8711384 (Version 2)
Quarter: 2015Q1

REPORT INFORMATION
  Report Type: Report from Study
  Country: US (occurrence: US)
  Receive Date: 20120807
  Receipt Date: 20150210
  Transmission Date: 20150721
  Serious: Yes (Hospitalization, Other)
  Sender: FDA-Public Use
  Company Number: US-ROCHE-1098204

PATIENT
  Sex: Female

DRUGS (10)
  1. PROVENTIL [Concomitant]
     Active Substance: ALBUTEROL
     Route: 065
  2. ALLEGRA [Concomitant]
     Active Substance: FEXOFENADINE HYDROCHLORIDE
     Dosage: EVERYDAY
     Route: 065
  3. ADVAIR HFA [Concomitant]
     Active Substance: FLUTICASONE PROPIONATE\SALMETEROL XINAFOATE
     Dosage: 500/50, PUFFS
     Route: 065
     Dates: start: 200105
  4. XOLAIR [Suspect]
     Active Substance: OMALIZUMAB
     Indication: ASTHMA
     Route: 058
  5. XOPENEX [Concomitant]
     Active Substance: LEVALBUTEROL HYDROCHLORIDE
  6. SEREVENT [Concomitant]
     Active Substance: SALMETEROL XINAFOATE
  7. SINGULAIR [Concomitant]
     Active Substance: MONTELUKAST SODIUM
     Route: 048
     Dates: start: 200104
  8. ALBUTEROL INHALER [Concomitant]
     Active Substance: ALBUTEROL
     Dosage: PUFFS
     Route: 065
     Dates: start: 200105
  9. RHINOCORT [Concomitant]
     Active Substance: BUDESONIDE
  10. FLOVENT [Concomitant]
     Active Substance: FLUTICASONE PROPIONATE

REACTIONS (6)
  - Pneumonia [Unknown]
  - Chest discomfort [Unknown]
  - Asthma [Unknown]
  - Wheezing [Unknown]
  - Bronchitis [Unknown]
  - Hypersensitivity [Unknown]
